FAERS Safety Report 5192149-3 (Version None)
Quarter: 2006Q4

REPORT INFORMATION
  Report Type: 
  Country: None (occurrence: None)
  Receive Date: 20061227
  Receipt Date: 20061115
  Transmission Date: 20070319
  Serious: Yes (Hospitalization)
  Sender: FDA-Public Use
  Company Number: JP-MERCK-0611USA05323

PATIENT
  Age: 71 Year
  Sex: Female
  Weight: 46 kg

DRUGS (5)
  1. FOSAMAX [Suspect]
     Indication: OSTEOPOROSIS
     Route: 048
     Dates: start: 20060722, end: 20060728
  2. ACTONEL [Suspect]
     Indication: OSTEOPOROSIS
     Route: 048
     Dates: start: 20060702, end: 20060721
  3. ALFACALCIDOL [Suspect]
     Indication: OSTEOPOROSIS
     Route: 048
     Dates: start: 20060702, end: 20060728
  4. ZALTOPROFEN [Suspect]
     Indication: CLAVICLE FRACTURE
     Route: 048
     Dates: start: 20060623, end: 20060626
  5. [THERAPY UNSPECIFIED] [Suspect]
     Indication: GASTRITIS
     Route: 048
     Dates: start: 20060623, end: 20060626

REACTIONS (3)
  - HEPATITIS [None]
  - HEPATITIS ACUTE [None]
  - RASH [None]
